FAERS Safety Report 4269610-9 (Version None)
Quarter: 2004Q1

REPORT INFORMATION
  Report Type: 
  Country: None (occurrence: None)
  Receive Date: 20040112
  Receipt Date: 20031229
  Transmission Date: 20041129
  Serious: Yes (Hospitalization)
  Sender: FDA-Public Use
  Company Number: RENA-10727

PATIENT
  Age: 70 Year
  Sex: Male
  Weight: 42.7 kg

DRUGS (12)
  1. RENAGEL [Suspect]
     Indication: HYPERPHOSPHATAEMIA
     Dosage: 1.5 G DAILY PO
     Dates: start: 20030814, end: 20031111
  2. IBUPROFEN, ETHENZAMIDE, CAFFEINE, BROMISOVAL [Suspect]
  3. SULINDAC [Concomitant]
  4. REBAMIPIDE [Concomitant]
  5. MENATETREONE [Concomitant]
  6. CALCIUM CARBONATE [Concomitant]
  7. FAMOTIDINE [Concomitant]
  8. PREDNISOLONE [Concomitant]
  9. EPOETIN BETA [Concomitant]
  10. FERRIC CHLORIDE [Concomitant]
  11. CHONDROITIN SULFATE SODIUM [Concomitant]
  12. IBUPROFEN, ETHENZAMIDE, CAFFEINE, BROMISOVAL [Concomitant]

REACTIONS (1)
  - TOXIC SKIN ERUPTION [None]
